FAERS Safety Report 8623514-7 (Version None)
Quarter: 2012Q3

REPORT INFORMATION
  Report Type: 
  Country: None (occurrence: None)
  Receive Date: 20120827
  Receipt Date: 20120816
  Transmission Date: 20120928
  Serious: Yes (Other)
  Sender: FDA-Public Use
  Company Number: CA-ASTRAZENECA-2012SE46279

PATIENT
  Age: 65 Year
  Sex: Male

DRUGS (4)
  1. ADALAT [Concomitant]
  2. CRESTOR [Suspect]
     Route: 048
  3. PANTALOC [Concomitant]
  4. SYNTHROID [Concomitant]

REACTIONS (1)
  - PSEUDOLYMPHOMA [None]
